FAERS Safety Report 15585112 (Version 4)
Quarter: 2019Q3

REPORT INFORMATION
  Report Type: Spontaneous
  Country: JP (occurrence: JP)
  Receive Date: 20181102
  Receipt Date: 20190705
  Transmission Date: 20191004
  Serious: Yes (Hospitalization)
  Sender: FDA-Public Use
  Company Number: JP-ALLERGAN-1851976US

PATIENT
  Sex: Female

DRUGS (3)
  1. SULPIRIDE [Suspect]
     Active Substance: SULPIRIDE
     Indication: PRODUCT USED FOR UNKNOWN INDICATION
     Dosage: UNK
     Route: 048
  2. DESMOPRESSIN [Concomitant]
     Active Substance: DESMOPRESSIN
     Indication: DIABETES INSIPIDUS
     Route: 045
  3. ESCITALOPRAM OXALATE - BP [Suspect]
     Active Substance: ESCITALOPRAM OXALATE
     Indication: PRODUCT USED FOR UNKNOWN INDICATION
     Route: 048

REACTIONS (4)
  - Thirst [Recovered/Resolved]
  - Vomiting [Unknown]
  - Hyponatraemia [Recovering/Resolving]
  - Muscle spasms [Unknown]
